FAERS Safety Report 14318690 (Version 5)
Quarter: 2018Q2

REPORT INFORMATION
  Report Type: Spontaneous
  Country: IT (occurrence: IT)
  Receive Date: 20171222
  Receipt Date: 20180430
  Transmission Date: 20180711
  Serious: Yes (Death, Life-Threatening, Hospitalization, Other)
  Sender: FDA-Public Use
  Company Number: IT-AUROBINDO-AUR-APL-2017-46788

PATIENT
  Age: 50 Year
  Sex: Male

DRUGS (2)
  1. AMLODIPINE [Suspect]
     Active Substance: AMLODIPINE BESYLATE
     Dosage: FREQUENCY DRUG (AMLODIPINE) TAKEN OCCASIONALLY ()
     Route: 048
  2. AMLODIPINE [Suspect]
     Active Substance: AMLODIPINE BESYLATE
     Indication: PRODUCT USED FOR UNKNOWN INDICATION
     Dosage: ()
     Route: 048

REACTIONS (8)
  - Intentional overdose [Fatal]
  - Pulmonary congestion [Fatal]
  - Apnoea [Fatal]
  - Unresponsive to stimuli [Fatal]
  - Pulmonary oedema [Fatal]
  - Death [Fatal]
  - Toxicity to various agents [Fatal]
  - Intentional product misuse [Fatal]
